FAERS Safety Report 9914042 (Version 1)
Quarter: 2014Q1

REPORT INFORMATION
  Report Type: Report from Study
  Country: NL (occurrence: NL)
  Receive Date: 20140220
  Receipt Date: 20140220
  Transmission Date: 20141002
  Serious: Yes (Hospitalization)
  Sender: FDA-Public Use
  Company Number: NL-GLAXOSMITHKLINE-B0970251A

PATIENT
  Age: 23 Year
  Sex: Male

DRUGS (3)
  1. MALARONE [Suspect]
     Indication: MALARIA
     Route: 065
  2. CHLOROQUINE [Concomitant]
     Indication: PROPHYLAXIS
     Route: 065
  3. MALARIA FALCIPARUM VACCINE [Concomitant]
     Indication: IMMUNISATION
     Route: 065

REACTIONS (15)
  - Myocarditis [Recovered/Resolved]
  - Headache [Recovered/Resolved]
  - Lymphocyte count decreased [Unknown]
  - Platelet count decreased [Unknown]
  - Troponin T increased [Unknown]
  - Fatigue [Recovered/Resolved]
  - Electrocardiogram ST segment elevation [Unknown]
  - Chest pain [Unknown]
  - Sensation of heaviness [Unknown]
  - Blood creatine phosphokinase increased [Unknown]
  - Aspartate aminotransferase increased [Unknown]
  - Blood lactate dehydrogenase increased [Unknown]
  - C-reactive protein increased [Unknown]
  - Oedema [Unknown]
  - Electrocardiogram QRS complex prolonged [Unknown]
